FAERS Safety Report 18444756 (Version 1)
Quarter: 2020Q4

REPORT INFORMATION
  Report Type: Spontaneous
  Country: US (occurrence: US)
  Receive Date: 20201030
  Receipt Date: 20201030
  Transmission Date: 20210114
  Serious: Yes (Other)
  Sender: FDA-Public Use
  Company Number: US-MYLANLABS-2020M1090039

PATIENT
  Age: 81 Year
  Sex: Male

DRUGS (3)
  1. ACITRETIN. [Suspect]
     Active Substance: ACITRETIN
     Dosage: 50 MILLIGRAM, QD
     Route: 065
  2. USTEKINUMAB [Suspect]
     Active Substance: USTEKINUMAB
     Indication: PITYRIASIS RUBRA PILARIS
     Dosage: 90 MILLIGRAM, Q3MONTHS
     Route: 065
  3. ACITRETIN. [Suspect]
     Active Substance: ACITRETIN
     Indication: PITYRIASIS RUBRA PILARIS
     Dosage: INITIAL DOSE UNKNOWN; TITRATED TO 50MG/DAY
     Route: 065

REACTIONS (7)
  - Nail dystrophy [Recovering/Resolving]
  - Alopecia [Unknown]
  - Sticky skin [Unknown]
  - Rebound effect [Unknown]
  - Gingival pain [Unknown]
  - Palmoplantar keratoderma [Recovering/Resolving]
  - Off label use [Unknown]
